FAERS Safety Report 7390333-1 (Version None)
Quarter: 2011Q2

REPORT INFORMATION
  Report Type: 
  Country: None (occurrence: None)
  Receive Date: 20110401
  Receipt Date: 20110322
  Transmission Date: 20111010
  Serious: Yes (Other)
  Sender: FDA-Public Use
  Company Number: FR-GENENTECH-314467

PATIENT
  Weight: 57 kg

DRUGS (2)
  1. PERFALGAN [Suspect]
     Indication: PYREXIA
     Dosage: 1 G, UNK
     Route: 042
     Dates: start: 20110207, end: 20110207
  2. MABTHERA [Suspect]
     Indication: DIFFUSE LARGE B-CELL LYMPHOMA
     Dosage: 600 MG, UNK
     Route: 042
     Dates: start: 20110207, end: 20110207

REACTIONS (4)
  - HYPOTHERMIA [None]
  - PYREXIA [None]
  - CHILLS [None]
  - HYPOTENSION [None]
